FAERS Safety Report 20123537 (Version 2)
Quarter: 2021Q4

REPORT INFORMATION
  Report Type: Spontaneous
  Country: JP (occurrence: JP)
  Receive Date: 20211129
  Receipt Date: 20211202
  Transmission Date: 20220303
  Serious: Yes (Death, Other)
  Sender: FDA-Public Use
  Company Number: JP-AMGEN-JPNSP2021187988

PATIENT
  Age: 1 Year
  Sex: Female

DRUGS (2)
  1. BLINCYTO [Suspect]
     Active Substance: BLINATUMOMAB
     Indication: Acute lymphocytic leukaemia recurrent
     Dosage: UNK
     Route: 065
  2. BLINCYTO [Suspect]
     Active Substance: BLINATUMOMAB
     Indication: KMT2A gene mutation

REACTIONS (7)
  - Post procedural sepsis [Fatal]
  - Respiratory distress [Unknown]
  - Cytokine release syndrome [Unknown]
  - Tachypnoea [Recovering/Resolving]
  - Erythema [Unknown]
  - Wheezing [Not Recovered/Not Resolved]
  - Pyrexia [Recovering/Resolving]
